FAERS Safety Report 7879783-4 (Version None)
Quarter: 2011Q4

REPORT INFORMATION
  Report Type: 
  Country: None (occurrence: None)
  Receive Date: 20111101
  Receipt Date: 20100426
  Transmission Date: 20120403
  Serious: No
  Sender: FDA-Public Use
  Company Number: US-BAYER-201020830NA

PATIENT
  Age: 29 Year
  Sex: Female

DRUGS (1)
  1. AVELOX [Suspect]
     Dosage: UNK
     Dates: start: 20100413

REACTIONS (8)
  - SOMNOLENCE [None]
  - VOMITING [None]
  - TONGUE PRURITUS [None]
  - TACHYCARDIA [None]
  - HYPERSENSITIVITY [None]
  - URTICARIA [None]
  - SWELLING FACE [None]
  - MIGRAINE [None]
